FAERS Safety Report 17188517 (Version 1)
Quarter: 2019Q4

REPORT INFORMATION
  Report Type: Other
  Country: US (occurrence: US)
  Receive Date: 20191222
  Receipt Date: 20191222
  Transmission Date: 20200122
  Serious: No
  Sender: FDA-Public Use
  Company Number: US-ACORDA-ACO_161443_2019

PATIENT
  Age: 58 Year
  Sex: Female

DRUGS (1)
  1. INBRIJA [Suspect]
     Active Substance: LEVODOPA
     Indication: PARKINSON^S DISEASE
     Dosage: 84 MILLIGRAM, PRN (INHALE CONTENTS OF TWO CAPSULES OF 42MG, UP TO 5 TIMES A DAY)
     Dates: start: 201906

REACTIONS (1)
  - Movement disorder [Unknown]

NARRATIVE: CASE EVENT DATE: 20190929
